FAERS Safety Report 8265412-7 (Version None)
Quarter: 2012Q2

REPORT INFORMATION
  Report Type: 
  Country: None (occurrence: None)
  Receive Date: 20120406
  Receipt Date: 20120403
  Transmission Date: 20120825
  Serious: Yes (Hospitalization, Other)
  Sender: FDA-Public Use
  Company Number: JP-PFIZER INC-2012066786

PATIENT
  Age: 30 Year
  Sex: Female

DRUGS (4)
  1. SUTENT [Suspect]
     Indication: RENAL CELL CARCINOMA
     Dosage: 50 MG/DAY, (4 DF)
     Route: 048
     Dates: start: 20111207
  2. SUTENT [Suspect]
     Dosage: 50 MG/DAY, (4 DF)
     Route: 048
     Dates: start: 20120311
  3. SUTENT [Suspect]
     Dosage: 50 MG/DAY, (4 DF)
     Route: 048
  4. SUTENT [Suspect]
     Dosage: 37.5MG/DAY
     Route: 048

REACTIONS (4)
  - DIARRHOEA [None]
  - NAUSEA [None]
  - GASTROINTESTINAL OEDEMA [None]
  - ABDOMINAL PAIN [None]
